FAERS Safety Report 21837347 (Version 3)
Quarter: 2023Q1

REPORT INFORMATION
  Report Type: Report from Study
  Country: US (occurrence: US)
  Receive Date: 20230109
  Receipt Date: 20230315
  Transmission Date: 20230418
  Serious: Yes (Hospitalization, Other)
  Sender: FDA-Public Use
  Company Number: US-ABBVIE-4260181

PATIENT
  Age: 74 Year
  Sex: Female
  Weight: 68 kg

DRUGS (18)
  1. HUMIRA [Suspect]
     Active Substance: ADALIMUMAB
     Indication: Rheumatoid arthritis
     Route: 058
     Dates: start: 20061002
  2. EPINEPHRINE [Concomitant]
     Active Substance: EPINEPHRINE
     Indication: Arthropod sting
  3. VITAMIN D3 [Concomitant]
     Active Substance: CHOLECALCIFEROL
     Indication: Supplementation therapy
     Dosage: FORM STRENGTH: 50000 UNIT
  4. SYNTHROID [Concomitant]
     Active Substance: LEVOTHYROXINE SODIUM
     Indication: Hypothyroidism
  5. MEXILETINE [Concomitant]
     Active Substance: MEXILETINE
     Indication: Cardiac disorder
  6. LASIX [Concomitant]
     Active Substance: FUROSEMIDE
     Indication: Prophylaxis
  7. LIDODERM [Concomitant]
     Active Substance: LIDOCAINE
     Indication: Back pain
     Dosage: EXTERNAL PATCH
  8. LOPRESSOR [Concomitant]
     Active Substance: METOPROLOL TARTRATE
     Indication: Angina pectoris
  9. LOSARTAN POTASSIUM [Concomitant]
     Active Substance: LOSARTAN POTASSIUM
     Indication: Blood pressure management
  10. FOLIC ACID [Concomitant]
     Active Substance: FOLIC ACID
     Indication: Rheumatoid arthritis
  11. SINGULAIR [Concomitant]
     Active Substance: MONTELUKAST SODIUM
     Indication: Respiratory disorder
  12. GEMTESA [Concomitant]
     Active Substance: VIBEGRON
     Indication: Sleep disorder
  13. METHOTREXATE [Concomitant]
     Active Substance: METHOTREXATE
     Indication: Rheumatoid arthritis
  14. TRAMADOL [Concomitant]
     Active Substance: TRAMADOL
     Indication: Arthralgia
  15. AMIODARONE [Concomitant]
     Active Substance: AMIODARONE
     Indication: Cardiac disorder
  16. ZYRTEC [Concomitant]
     Active Substance: CETIRIZINE HYDROCHLORIDE
     Indication: Hypersensitivity
  17. ALBUTEROL [Concomitant]
     Active Substance: ALBUTEROL
     Indication: Respiratory disorder
  18. PRILOSEC [Concomitant]
     Active Substance: OMEPRAZOLE MAGNESIUM
     Indication: Gastric disorder

REACTIONS (2)
  - Implantable defibrillator insertion [Unknown]
  - Heart rate decreased [Not Recovered/Not Resolved]

NARRATIVE: CASE EVENT DATE: 20180727
